FAERS Safety Report 9396238 (Version 2)
Quarter: 2013Q3

REPORT INFORMATION
  Report Type: Spontaneous
  Country: ES (occurrence: ES)
  Receive Date: 20130711
  Receipt Date: 20130715
  Transmission Date: 20140515
  Serious: Yes (Other)
  Sender: FDA-Public Use
  Company Number: ES-ELI_LILLY_AND_COMPANY-ES201307001180

PATIENT
  Age: 65 Year
  Sex: Female

DRUGS (2)
  1. FORSTEO [Suspect]
     Indication: OSTEOPOROSIS
     Dosage: 20 UG, QD
     Route: 058
     Dates: start: 201106, end: 20130630
  2. IBUPROFEN [Concomitant]
     Indication: NEPHROLITHIASIS

REACTIONS (2)
  - Hypokinesia [Recovered/Resolved]
  - Paraesthesia [Recovered/Resolved]
